FAERS Safety Report 18645656 (Version 1)
Quarter: 2020Q4

REPORT INFORMATION
  Report Type: Spontaneous
  Country: US (occurrence: US)
  Receive Date: 20201222
  Receipt Date: 20201222
  Transmission Date: 20210114
  Serious: No
  Sender: FDA-Public Use
  Company Number: US-STRIDES ARCOLAB LIMITED-2020SP015233

PATIENT
  Age: 68 Year
  Sex: Male
  Weight: 65.8 kg

DRUGS (13)
  1. TOCILIZUMAB. [Concomitant]
     Active Substance: TOCILIZUMAB
     Indication: HYPOXIA
     Dosage: 8 MILLIGRAM/KILOGRAM, ON HD2
     Route: 042
  2. METRONIDAZOLE. [Concomitant]
     Active Substance: METRONIDAZOLE
     Indication: MENINGITIS BACTERIAL
     Dosage: UNK
     Route: 065
  3. TOCILIZUMAB. [Concomitant]
     Active Substance: TOCILIZUMAB
     Indication: COVID-19
  4. CIPROFLOXACIN. [Concomitant]
     Active Substance: CIPROFLOXACIN
     Indication: STAPHYLOCOCCAL SEPSIS
  5. CEFAZOLINE [CEFAZOLIN] [Concomitant]
     Active Substance: CEFAZOLIN
     Indication: PSEUDOMONAS INFECTION
     Dosage: UNK
     Route: 065
  6. NOREPINEPHRINE. [Concomitant]
     Active Substance: NOREPINEPHRINE
     Indication: HYPOTENSION
     Dosage: UNK
     Route: 065
  7. ALBENDAZOLE. [Suspect]
     Active Substance: ALBENDAZOLE
     Indication: DISSEMINATED STRONGYLOIDIASIS
     Dosage: 400 MILLIGRAM, EVERY 12 HRS
     Route: 048
  8. VANCOMYCIN [Concomitant]
     Active Substance: VANCOMYCIN
     Indication: MENINGITIS
     Dosage: UNK
     Route: 042
  9. CEFAZOLINE [CEFAZOLIN] [Concomitant]
     Active Substance: CEFAZOLIN
     Indication: STAPHYLOCOCCAL SEPSIS
  10. METHYLPREDNISOLONE. [Concomitant]
     Active Substance: METHYLPREDNISOLONE
     Indication: HYPOXIA
  11. CIPROFLOXACIN. [Concomitant]
     Active Substance: CIPROFLOXACIN
     Indication: PSEUDOMONAS AERUGINOSA MENINGITIS
     Dosage: UNK
     Route: 042
  12. IVERMECTIN. [Concomitant]
     Active Substance: IVERMECTIN
     Indication: INFECTION
     Dosage: 200 MICROGRAM/KILOGRAM
     Route: 048
  13. METHYLPREDNISOLONE. [Concomitant]
     Active Substance: METHYLPREDNISOLONE
     Indication: COVID-19
     Dosage: HOSPITAL DAYS 4-6, 8-10, 12 AND 13
     Route: 042

REACTIONS (1)
  - Off label use [Unknown]
